FAERS Safety Report 9472590 (Version 1)
Quarter: 2013Q3

REPORT INFORMATION
  Report Type: Spontaneous
  Country: CL (occurrence: CL)
  Receive Date: 20130823
  Receipt Date: 20130823
  Transmission Date: 20140515
  Serious: Yes (Life-Threatening, Other)
  Sender: FDA-Public Use
  Company Number: CL-ASTRAZENECA-2013SE64830

PATIENT
  Sex: Female
  Weight: 52 kg

DRUGS (3)
  1. NEXIUM [Suspect]
     Route: 048
     Dates: start: 20120501, end: 20121231
  2. RANITIDINE [Concomitant]
  3. MULCATEL [Concomitant]

REACTIONS (4)
  - Gastrooesophageal reflux disease [Unknown]
  - Gastric polyps [Unknown]
  - Hypochromic anaemia [Unknown]
  - Weight decreased [Unknown]
